FAERS Safety Report 10901220 (Version 1)
Quarter: 2015Q1

REPORT INFORMATION
  Report Type: Spontaneous
  Country: US (occurrence: None)
  Receive Date: 20150303
  Receipt Date: 20150303
  Transmission Date: 20150721
  Serious: Yes (Other)
  Sender: FDA-Public Use
  Company Number: ADR-2015-00406

PATIENT
  Age: 49 Year
  Sex: Female

DRUGS (3)
  1. DILAUDID [Suspect]
     Active Substance: HYDROMORPHONE HYDROCHLORIDE
  2. UNKNOWN INTRATHECAL MEDICATION THAT WAS A NUMBING AGENT [Suspect]
     Active Substance: UNSPECIFIED INGREDIENT
  3. BACLOFEN INTRATHECAL [Suspect]
     Active Substance: BACLOFEN
     Indication: POST LAMINECTOMY SYNDROME

REACTIONS (10)
  - Drug level above therapeutic [None]
  - Dyspnoea [None]
  - No therapeutic response [None]
  - Intervertebral disc protrusion [None]
  - Cardiac disorder [None]
  - Unevaluable event [None]
  - Performance status decreased [None]
  - Headache [None]
  - Bedridden [None]
  - Angina pectoris [None]

NARRATIVE: CASE EVENT DATE: 20110418
